FAERS Safety Report 6070419-4 (Version None)
Quarter: 2009Q1

REPORT INFORMATION
  Report Type: 
  Country: None (occurrence: None)
  Receive Date: 20090209
  Receipt Date: 20090128
  Transmission Date: 20090719
  Serious: Yes (Hospitalization, Other)
  Sender: FDA-Public Use
  Company Number: PHHY2008AU22260

PATIENT
  Sex: Female
  Weight: 145 kg

DRUGS (12)
  1. CLOZARIL [Suspect]
     Indication: SCHIZOPHRENIA
     Dosage: AROUND 200 MG
  2. CLOZARIL [Suspect]
     Dosage: 400 MG/DAY
     Route: 048
     Dates: start: 19960906
  3. CLOZARIL [Suspect]
     Dosage: 350 MG/DAY
     Route: 048
  4. CLOZARIL [Suspect]
     Dosage: 300 MG/DAY
     Route: 048
  5. CLOZARIL [Suspect]
     Dosage: 350 MG/DAY
     Route: 048
  6. CLOZARIL [Suspect]
     Dosage: 200 MG FOR 1 WEEK
  7. CLOZARIL [Suspect]
     Dosage: 300 MG
  8. CLOZARIL [Suspect]
     Dosage: 400 MG DAILY
  9. ZOLOFT [Concomitant]
  10. EPILIM [Concomitant]
  11. AMARYL [Concomitant]
  12. DIABEX [Concomitant]
     Dosage: 500 MG, BID

REACTIONS (21)
  - ANGER [None]
  - BODY TEMPERATURE INCREASED [None]
  - CHEST PAIN [None]
  - COGNITIVE DISORDER [None]
  - DIZZINESS [None]
  - DRUG EFFECT DECREASED [None]
  - DRUG TOLERANCE [None]
  - EMBOLISM [None]
  - ENURESIS [None]
  - HALLUCINATION, AUDITORY [None]
  - HYPERHIDROSIS [None]
  - INCREASED APPETITE [None]
  - IRRITABILITY [None]
  - OXYGEN SATURATION DECREASED [None]
  - PAIN IN EXTREMITY [None]
  - PULMONARY EMBOLISM [None]
  - SOMNOLENCE [None]
  - SYNCOPE [None]
  - THERAPEUTIC RESPONSE UNEXPECTED [None]
  - THROMBOSIS [None]
  - WEIGHT INCREASED [None]
